FAERS Safety Report 5215451-5 (Version None)
Quarter: 2007Q1

REPORT INFORMATION
  Report Type: 
  Country: None (occurrence: None)
  Receive Date: 20070119
  Receipt Date: 20070119
  Transmission Date: 20070707
  Serious: No
  Sender: FDA-Public Use
  Company Number: None

PATIENT
  Age: 18 Year
  Sex: Female
  Weight: 50.8029 kg

DRUGS (1)
  1. DEPO-PROVERA [Suspect]
     Indication: CONTRACEPTION
     Dosage: EVERY 3 MONTHS  IM
     Route: 030
     Dates: start: 20001024, end: 20040717

REACTIONS (3)
  - CERVIX CARCINOMA [None]
  - INFERTILITY FEMALE [None]
  - MENSTRUAL DISORDER [None]
